FAERS Safety Report 25501954 (Version 2)
Quarter: 2025Q3

REPORT INFORMATION
  Report Type: Spontaneous
  Country: EU (occurrence: EU)
  Receive Date: 20250702
  Receipt Date: 20250703
  Transmission Date: 20251020
  Serious: Yes (Death, Other)
  Sender: SANDOZ
  Company Number: EU-STADA-277548

PATIENT
  Age: 61 Year
  Sex: Female

DRUGS (11)
  1. ACYCLOVIR [Suspect]
     Active Substance: ACYCLOVIR
     Indication: Herpes simplex
     Route: 065
  2. ACYCLOVIR [Suspect]
     Active Substance: ACYCLOVIR
     Indication: Oral herpes
  3. AMSACRINE [Suspect]
     Active Substance: AMSACRINE
     Indication: Chronic myelomonocytic leukaemia
     Route: 065
  4. THYMOCYTE IMMUNE GLOBULIN NOS [Suspect]
     Active Substance: THYMOCYTE IMMUNE GLOBULIN NOS
     Indication: Chronic myelomonocytic leukaemia
     Route: 065
  5. CYCLOPHOSPHAMIDE [Suspect]
     Active Substance: CYCLOPHOSPHAMIDE
     Indication: Chronic myelomonocytic leukaemia
     Route: 065
  6. CYTARABINE [Suspect]
     Active Substance: CYTARABINE
     Indication: Chronic myelomonocytic leukaemia
     Route: 065
  7. FLUDARABINE [Suspect]
     Active Substance: FLUDARABINE PHOSPHATE
     Indication: Chronic myelomonocytic leukaemia
     Route: 065
  8. FOSCARNET SODIUM [Concomitant]
     Active Substance: FOSCARNET SODIUM
     Indication: Oral herpes
     Route: 065
  9. FOSCARNET SODIUM [Concomitant]
     Active Substance: FOSCARNET SODIUM
     Indication: Herpes simplex
  10. PRITELIVIR [Concomitant]
     Active Substance: PRITELIVIR
     Indication: Oral herpes
     Route: 065
  11. PRITELIVIR [Concomitant]
     Active Substance: PRITELIVIR
     Indication: Herpes simplex

REACTIONS (4)
  - Renal impairment [Fatal]
  - Herpes simplex [Recovered/Resolved]
  - Drug resistance [Unknown]
  - Drug ineffective [Unknown]
